FAERS Safety Report 8087142-7 (Version None)
Quarter: 2012Q1

REPORT INFORMATION
  Report Type: 
  Country: None (occurrence: None)
  Receive Date: 20120128
  Receipt Date: 20110510
  Transmission Date: 20120608
  Serious: No
  Sender: FDA-Public Use
  Company Number: US-ABBOTT-11P-163-0725291-00

PATIENT
  Sex: Female

DRUGS (10)
  1. AMBIEN CR [Concomitant]
     Indication: INSOMNIA
  2. HUMIRA [Suspect]
     Dates: start: 20110201, end: 20110401
  3. CYMBALTA [Concomitant]
     Indication: PAIN
  4. DYAZIDE [Concomitant]
     Indication: OEDEMA
     Dosage: 37.5/25 MG DAILY
  5. HUMIRA [Suspect]
     Indication: PSORIATIC ARTHROPATHY
     Dates: start: 20081201, end: 20101201
  6. TOPAMAX [Concomitant]
     Indication: MIGRAINE PROPHYLAXIS
  7. WELLBUTRIN [Concomitant]
     Indication: DEPRESSION
  8. NORCO [Concomitant]
     Indication: PAIN
     Dosage: 10/325 MG EVERY 4-6 HRS
  9. CYMBALTA [Concomitant]
     Indication: DEPRESSION
  10. MAXALT [Concomitant]
     Indication: MIGRAINE

REACTIONS (5)
  - DEMYELINATION [None]
  - FATIGUE [None]
  - PAIN [None]
  - PARAESTHESIA [None]
  - OEDEMA [None]
